FAERS Safety Report 5922692-8 (Version None)
Quarter: 2008Q4

REPORT INFORMATION
  Report Type: 
  Country: None (occurrence: None)
  Receive Date: 20081017
  Receipt Date: 20081008
  Transmission Date: 20090506
  Serious: Yes (Hospitalization)
  Sender: FDA-Public Use
  Company Number: FR-ELI_LILLY_AND_COMPANY-FR200810001793

PATIENT
  Age: 27 Year
  Sex: Female

DRUGS (6)
  1. ZYPREXA [Suspect]
     Indication: BIPOLAR DISORDER
     Dosage: 15 MG, DAILY (1/D)
     Route: 048
  2. DEPAKOTE [Concomitant]
     Indication: BIPOLAR DISORDER
     Dosage: 3 D/F, DAILY (1/D)
     Route: 048
     Dates: end: 20070907
  3. HEPT-A-MYL [Concomitant]
     Indication: BIPOLAR DISORDER
     Dosage: 2 D/F, DAILY (1/D)
     Route: 048
     Dates: end: 20070907
  4. SERESTA [Concomitant]
     Indication: BIPOLAR DISORDER
     Dosage: UNK, UNK
     Dates: start: 20070901
  5. LARGACTIL [Concomitant]
     Indication: BIPOLAR DISORDER
     Dosage: 25 MG, 5 TIMES A DAY
     Dates: start: 20070901
  6. ZOLPIDEM [Concomitant]
     Indication: BIPOLAR DISORDER
     Dates: start: 20070901

REACTIONS (2)
  - DRUG EXPOSURE DURING PREGNANCY [None]
  - HOSPITALISATION [None]
